FAERS Safety Report 9614041 (Version 1)
Quarter: 2013Q4

REPORT INFORMATION
  Report Type: Report from Study
  Country: US (occurrence: US)
  Receive Date: 20131011
  Receipt Date: 20131011
  Transmission Date: 20140711
  Serious: Yes (Hospitalization)
  Sender: FDA-Public Use
  Company Number: US-ROCHE-1286600

PATIENT
  Sex: Female

DRUGS (22)
  1. XOLAIR [Suspect]
     Indication: ASTHMA
     Route: 065
  2. LOPRESSOR [Concomitant]
     Dosage: 1 TABLET TWICE A DAY
     Route: 048
  3. NASONEX [Concomitant]
     Route: 065
  4. SINGULAIR [Concomitant]
     Dosage: 1 NIGHTLY
     Route: 048
  5. DUONEB [Concomitant]
     Dosage: PER 3ML NEB SOLUTION
     Route: 065
  6. CLOPIDOGREL [Concomitant]
     Route: 065
  7. NEXIUM [Concomitant]
     Dosage: DELAYED RELEASED
     Route: 065
  8. DILTIAZEM CD [Concomitant]
     Dosage: EXTENDED RELEASE 24 HR
     Route: 048
  9. IBUPROFEN [Concomitant]
     Route: 048
  10. ISOSORBIDE MONONITRATE ER [Concomitant]
     Route: 065
  11. HYDROMORPHONE [Concomitant]
     Route: 065
  12. PROAIR (UNITED STATES) [Concomitant]
     Dosage: ACTUATION AEROSOL INHALER
     Route: 065
  13. METFORMIN ER [Concomitant]
     Route: 048
  14. ALPRAZOLAM [Concomitant]
     Route: 065
  15. ADVAIR DISKUS [Concomitant]
     Dosage: INHALATION
     Route: 065
  16. ACETAMINOPHEN [Concomitant]
     Route: 065
  17. ALBUTEROL [Concomitant]
     Dosage: NEB EVERY 4 HOURS AS NEEDED
     Route: 065
  18. EPIPEN [Concomitant]
     Dosage: 1000 DEVI 1 TIME ONLY
     Route: 065
  19. LISINOPRIL [Concomitant]
     Dosage: 1 TABLET
     Route: 065
  20. PREDNISONE [Concomitant]
     Dosage: 2 TABS FOR 7 DAYS, THEN 1 TAB FOR 7 DAYS
     Route: 065
  21. PROVENTIL HFA [Concomitant]
     Dosage: 2 PUFFS EVERY 4 HOURS AS NEEDED
     Route: 065
  22. FLONASE [Concomitant]
     Dosage: PER ACT 2 SPRAYS EACH NOSTRIL TWICE A DAY
     Route: 065

REACTIONS (27)
  - Cardiac enzymes increased [Unknown]
  - Neck pain [Unknown]
  - Musculoskeletal pain [Unknown]
  - Joint range of motion decreased [Unknown]
  - Pain in extremity [Unknown]
  - Cough [Unknown]
  - Chest discomfort [Recovering/Resolving]
  - Dyspnoea [Unknown]
  - Oropharyngeal pain [Unknown]
  - Sputum discoloured [Unknown]
  - Peak expiratory flow rate decreased [Unknown]
  - Sputum discoloured [Unknown]
  - Wheezing [Unknown]
  - Dyspnoea [Recovering/Resolving]
  - Exercise tolerance decreased [Unknown]
  - Nasal congestion [Unknown]
  - Upper-airway cough syndrome [Unknown]
  - Dysphonia [Unknown]
  - Asthma [Unknown]
  - Cardiac function test abnormal [Unknown]
  - Exposure during pregnancy [Unknown]
  - Obstruction [Unknown]
  - Sinus congestion [Unknown]
  - Asthma [Unknown]
  - Productive cough [Unknown]
  - Obstructive airways disorder [Unknown]
  - Chest pain [Recovering/Resolving]
